FAERS Safety Report 7802213-5 (Version None)
Quarter: 2011Q4

REPORT INFORMATION
  Report Type: 
  Country: None (occurrence: None)
  Receive Date: 20111007
  Receipt Date: 20110930
  Transmission Date: 20120403
  Serious: Yes (Death, Hospitalization)
  Sender: FDA-Public Use
  Company Number: JP-CEPHALON-2011001886

PATIENT
  Sex: Male
  Weight: 54 kg

DRUGS (6)
  1. GRANISETRON HYDROCHLORIDE [Concomitant]
     Dates: start: 20110203, end: 20110729
  2. BENDAMUSTINE HCL [Suspect]
     Indication: EXTRANODAL MARGINAL ZONE B-CELL LYMPHOMA (MALT TYPE)
     Route: 042
     Dates: start: 20110203, end: 20110729
  3. SENNOSIDE [Concomitant]
  4. DILTIAZEM HCL [Concomitant]
  5. DEXAMETHASONE SODIUM PHOSPHATE [Concomitant]
     Dates: start: 20110203, end: 20110729
  6. BISOPROLOL FUMARATE [Concomitant]

REACTIONS (2)
  - CARDIAC DISORDER [None]
  - HEPATIC FUNCTION ABNORMAL [None]
